FAERS Safety Report 9798252 (Version 2)
Quarter: 2014Q1

REPORT INFORMATION
  Report Type: Spontaneous
  Country: US (occurrence: US)
  Receive Date: 20140106
  Receipt Date: 20140106
  Transmission Date: 20141002
  Serious: No
  Sender: FDA-Public Use
  Company Number: US-PFIZER INC-2013326582

PATIENT
  Age: 43 Year
  Sex: Female
  Weight: 68.03 kg

DRUGS (6)
  1. SUTENT [Suspect]
     Indication: INTRAOCULAR MELANOMA
     Dosage: 25 MG, DAILY
     Dates: start: 20131115
  2. SUTENT [Suspect]
     Dosage: 25 MG, DAILY
     Dates: start: 20130101
  3. WELLBUTRIN [Concomitant]
     Dosage: UNK
  4. NASONEX [Concomitant]
     Dosage: UNK
  5. IRON [Concomitant]
     Dosage: UNK
  6. VITAMIN C [Concomitant]
     Dosage: UNK

REACTIONS (4)
  - Blister [Unknown]
  - Lip pain [Unknown]
  - Oral pain [Unknown]
  - Off label use [Unknown]
